FAERS Safety Report 17874321 (Version 1)
Quarter: 2020Q2

REPORT INFORMATION
  Report Type: Spontaneous
  Country: US (occurrence: US)
  Receive Date: 20200608
  Receipt Date: 20200608
  Transmission Date: 20200714
  Serious: Yes (Life-Threatening)
  Sender: FDA-Public Use
  Company Number: None

PATIENT
  Age: 78 Year
  Sex: Male

DRUGS (2)
  1. DIVALPROEX (DIVALPROEX NA 500MG TAB, SA) [Suspect]
     Active Substance: DIVALPROEX SODIUM
     Indication: BIPOLAR DISORDER
     Route: 048
     Dates: end: 20200302
  2. DIVALPROEX (DIVALPROEX NA 500MG TAB, SA) [Suspect]
     Active Substance: DIVALPROEX SODIUM
     Indication: MANIA
     Route: 048
     Dates: end: 20200302

REACTIONS (2)
  - Therapy cessation [None]
  - Thrombocytopenia [None]

NARRATIVE: CASE EVENT DATE: 20200304
